FAERS Safety Report 8461528-0 (Version None)
Quarter: 2012Q2

REPORT INFORMATION
  Report Type: 
  Country: None (occurrence: None)
  Receive Date: 20120615
  Receipt Date: 20120613
  Transmission Date: 20120825
  Serious: Yes (Death, Life-Threatening, Hospitalization, Other)
  Sender: FDA-Public Use
  Company Number: ADR-2011-10955

PATIENT

DRUGS (1)
  1. LIORESAL [Suspect]
     Indication: MUSCLE SPASTICITY
     Dosage: UNK MCG, DAILY, INTRAH
     Route: 037

REACTIONS (9)
  - INTRACRANIAL HYPOTENSION [None]
  - MUSCLE SPASTICITY [None]
  - DEVICE LEAKAGE [None]
  - DEVICE CONNECTION ISSUE [None]
  - RESPIRATORY FAILURE [None]
  - UNDERDOSE [None]
  - OVERDOSE [None]
  - CONDITION AGGRAVATED [None]
  - MULTI-ORGAN FAILURE [None]
